FAERS Safety Report 4754044-0 (Version None)
Quarter: 2005Q3

REPORT INFORMATION
  Report Type: 
  Country: None (occurrence: None)
  Receive Date: 20050826
  Receipt Date: 20050427
  Transmission Date: 20060218
  Serious: Yes (Hospitalization)
  Sender: FDA-Public Use
  Company Number: US-MERCK-0505USA00259

PATIENT
  Age: 76 Year
  Sex: Female
  Weight: 73 kg

DRUGS (12)
  1. VIOXX [Suspect]
     Indication: ARTHRITIS
     Route: 048
     Dates: start: 20000101, end: 20040101
  2. NORVASC [Concomitant]
     Indication: HYPERTENSION
     Route: 065
     Dates: start: 19990101
  3. SYNTHROID [Concomitant]
     Indication: THYROID DISORDER
     Route: 065
  4. ZYRTEC [Concomitant]
     Indication: SEASONAL ALLERGY
     Route: 065
  5. VICODIN [Concomitant]
     Route: 065
     Dates: start: 19991101, end: 20000601
  6. TETRACYCLINE [Concomitant]
     Route: 065
  7. DOCUSATE CALCIUM [Concomitant]
     Indication: CONSTIPATION PROPHYLAXIS
     Route: 065
  8. SINGULAIR [Concomitant]
     Route: 048
  9. FUROSEMIDE [Concomitant]
     Route: 065
  10. TYLENOL W/ CODEINE NO. 3 [Concomitant]
     Route: 065
     Dates: start: 20020901, end: 20050301
  11. ASPIRIN [Concomitant]
     Route: 065
     Dates: start: 20020101
  12. DYAZIDE [Concomitant]
     Route: 065
     Dates: start: 19990101, end: 20040101

REACTIONS (3)
  - CEREBROVASCULAR ACCIDENT [None]
  - DIABETES MELLITUS [None]
  - HYPERTENSION [None]
